FAERS Safety Report 12179710 (Version 1)
Quarter: 2016Q1

REPORT INFORMATION
  Report Type: Spontaneous
  Country: US (occurrence: None)
  Receive Date: 20160314
  Receipt Date: 20160314
  Transmission Date: 20160526
  Serious: No
  Sender: FDA-Public Use
  Company Number: None

PATIENT
  Age: 54 Year
  Sex: Male

DRUGS (1)
  1. IMATINIB 400MG RANBAXY [Suspect]
     Active Substance: IMATINIB
     Route: 048
     Dates: start: 20160210

REACTIONS (2)
  - Asthenia [None]
  - Eye swelling [None]

NARRATIVE: CASE EVENT DATE: 20160301
